FAERS Safety Report 7475417-1 (Version None)
Quarter: 2011Q2

REPORT INFORMATION
  Report Type: 
  Country: None (occurrence: None)
  Receive Date: 20110510
  Receipt Date: 20110510
  Transmission Date: 20111010
  Serious: Yes (Other)
  Sender: FDA-Public Use
  Company Number: None

PATIENT
  Age: 48 Year
  Sex: Male
  Weight: 85.7298 kg

DRUGS (3)
  1. XANAX [Concomitant]
  2. EFFEXOR XR [Suspect]
     Indication: DEPRESSION
     Dosage: P.O. 150MG
     Route: 048
  3. EFFEXOR XR [Suspect]
     Indication: ANXIETY
     Dosage: P.O. 150MG
     Route: 048

REACTIONS (2)
  - DIZZINESS [None]
  - ANXIETY [None]
